FAERS Safety Report 4995584-9 (Version None)
Quarter: 2006Q2

REPORT INFORMATION
  Report Type: 
  Country: None (occurrence: None)
  Receive Date: 20060508
  Receipt Date: 20060424
  Transmission Date: 20061013
  Serious: Yes (Hospitalization)
  Sender: FDA-Public Use
  Company Number: TW-ROCHE-445255

PATIENT
  Age: 64 Year
  Sex: Male

DRUGS (2)
  1. XENICAL [Suspect]
     Indication: WEIGHT CONTROL
     Route: 048
     Dates: start: 20040408, end: 20050623
  2. CHINESE MEDICINE NOS [Concomitant]

REACTIONS (6)
  - ARTERIOSCLEROSIS CORONARY ARTERY [None]
  - CARDIOMEGALY [None]
  - COLON CANCER [None]
  - HAEMORRHOIDS [None]
  - HEPATIC STEATOSIS [None]
  - NEPHROLITHIASIS [None]
